FAERS Safety Report 23905480 (Version 1)
Quarter: 2024Q2

REPORT INFORMATION
  Report Type: Spontaneous
  Country: JP (occurrence: None)
  Receive Date: 20240527
  Receipt Date: 20240527
  Transmission Date: 20240716
  Serious: Yes (Death, Other)
  Sender: FDA-Public Use
  Company Number: 2024A122025

PATIENT
  Age: 44 Year
  Sex: Male

DRUGS (2)
  1. OSIMERTINIB [Suspect]
     Active Substance: OSIMERTINIB
     Indication: Neuroendocrine tumour of the lung
     Route: 048
  2. OSIMERTINIB [Suspect]
     Active Substance: OSIMERTINIB
     Indication: Neuroendocrine tumour of the lung
     Route: 048

REACTIONS (2)
  - Metastases to meninges [Fatal]
  - Malignant neoplasm progression [Fatal]
